FAERS Safety Report 7327305-9 (Version None)
Quarter: 2011Q1

REPORT INFORMATION
  Report Type: 
  Country: None (occurrence: None)
  Receive Date: 20110302
  Receipt Date: 20110218
  Transmission Date: 20110831
  Serious: Yes (Hospitalization)
  Sender: FDA-Public Use
  Company Number: JP-GILEAD-E2B_00000973

PATIENT
  Age: 61 Year
  Sex: Female

DRUGS (1)
  1. AMBRISENTAN [Suspect]
     Indication: PULMONARY HYPERTENSION
     Dosage: 5MG PER DAY
     Route: 048
     Dates: start: 20101122

REACTIONS (1)
  - ASCITES [None]
